FAERS Safety Report 5798992-1 (Version None)
Quarter: 2008Q3

REPORT INFORMATION
  Report Type: 
  Country: None (occurrence: None)
  Receive Date: 20080702
  Receipt Date: 20080306
  Transmission Date: 20090109
  Serious: Yes (Hospitalization, Other)
  Sender: FDA-Public Use
  Company Number: US-BRISTOL-MYERS SQUIBB COMPANY-13978150

PATIENT
  Age: 66 Year
  Sex: Female
  Weight: 95 kg

DRUGS (9)
  1. SPRYCEL [Suspect]
     Indication: CHRONIC MYELOID LEUKAEMIA
     Dosage: STOPPED ON 09AUG07 AND RESTARTED FROM 30AUG07-07OCT07
     Route: 048
     Dates: start: 20070711, end: 20071007
  2. LASIX [Concomitant]
  3. LEXAPRO [Concomitant]
  4. LYRICA [Concomitant]
  5. LUNESTA [Concomitant]
  6. CARDIZEM [Concomitant]
  7. DETROL LA [Concomitant]
  8. ACULAR [Concomitant]
  9. FLEXERIL [Concomitant]

REACTIONS (2)
  - CARDIAC FAILURE CONGESTIVE [None]
  - CORONARY ARTERY DISEASE [None]
